FAERS Safety Report 25551569 (Version 1)
Quarter: 2025Q3

REPORT INFORMATION
  Report Type: Spontaneous
  Country: US (occurrence: US)
  Receive Date: 20250714
  Receipt Date: 20250714
  Transmission Date: 20251020
  Serious: No
  Sender: ASTELLAS
  Company Number: US-ASTELLAS-2024-AER-024092

PATIENT
  Age: 88 Year
  Sex: Male
  Weight: 106 kg

DRUGS (1)
  1. MYRBETRIQ [Suspect]
     Active Substance: MIRABEGRON
     Indication: Hypertonic bladder
     Dosage: 2 ML (16 MG) ONCE DAILY, EXTENDED RELEASE ORAL SUSPENSION
     Route: 048

REACTIONS (2)
  - Underdose [Unknown]
  - Off label use [Unknown]
